FAERS Safety Report 13918126 (Version 3)
Quarter: 2017Q4

REPORT INFORMATION
  Report Type: Spontaneous
  Country: US (occurrence: US)
  Receive Date: 20170829
  Receipt Date: 20171106
  Transmission Date: 20180320
  Serious: Yes (Hospitalization, Other)
  Sender: FDA-Public Use
  Company Number: US-PFIZER INC-2017366265

PATIENT
  Age: 56 Year
  Sex: Female
  Weight: 90.7 kg

DRUGS (7)
  1. XANAX [Suspect]
     Active Substance: ALPRAZOLAM
     Dosage: UNK
  2. OXYCODONE [Interacting]
     Active Substance: OXYCODONE
     Indication: PAIN
     Dosage: 120 MG, DAILY (FOUR 30 MG TABLETS TAKEN 4 TIMES A DAY)
     Route: 048
  3. OXYCODONE/ACETAMINOPHEN [Suspect]
     Active Substance: ACETAMINOPHEN\OXYCODONE HYDROCHLORIDE
     Indication: PAIN
     Dosage: UNK
  4. GABAPENTIN. [Interacting]
     Active Substance: GABAPENTIN
     Indication: DIABETIC NEUROPATHY
     Dosage: 1600 MG, 1X/DAY (400 MG FOUR TIMES DAILY)
     Dates: start: 1996
  5. PERCOCET [Suspect]
     Active Substance: ACETAMINOPHEN\OXYCODONE HYDROCHLORIDE
     Dosage: UNK
  6. OPANA [Interacting]
     Active Substance: OXYMORPHONE HYDROCHLORIDE
     Indication: PAIN
     Dosage: 160 MG, DAILY(FOUR 40MG TABLETS TAKEN FOUR TIMES DAILY AT BREAKFAST, LUNCH, DINNER)
  7. OXYCODONE [Interacting]
     Active Substance: OXYCODONE
     Indication: BREAKTHROUGH PAIN

REACTIONS (9)
  - Drug interaction [Unknown]
  - Inappropriate schedule of drug administration [Not Recovered/Not Resolved]
  - Drug effect decreased [Not Recovered/Not Resolved]
  - Atrial fibrillation [Unknown]
  - Aggression [Recovered/Resolved]
  - Loss of consciousness [Unknown]
  - Drug abuse [Unknown]
  - Overdose [Recovered/Resolved]
  - Lower limb fracture [Unknown]

NARRATIVE: CASE EVENT DATE: 20160801
